FAERS Safety Report 11611807 (Version 1)
Quarter: 2015Q4

REPORT INFORMATION
  Report Type: Spontaneous
  Country: SE (occurrence: SE)
  Receive Date: 20151008
  Receipt Date: 20151008
  Transmission Date: 20160304
  Serious: Yes (Life-Threatening)
  Sender: FDA-Public Use
  Company Number: SE-TEVA-599225ISR

PATIENT
  Age: 68 Year
  Sex: Female

DRUGS (4)
  1. EPIRUBICIN [Suspect]
     Active Substance: EPIRUBICIN
     Route: 042
  2. CYCLOPHOSPHAMIDE (MONOHYDRATE) [Suspect]
     Active Substance: CYCLOPHOSPHAMIDE
  3. FLUOROURACIL. [Suspect]
     Active Substance: FLUOROURACIL
  4. FLUOROURACIL. [Suspect]
     Active Substance: FLUOROURACIL
     Route: 042

REACTIONS (1)
  - Myocardial infarction [Recovered/Resolved]
